FAERS Safety Report 21655740 (Version 1)
Quarter: 2022Q4

REPORT INFORMATION
  Report Type: Report from Study
  Country: US (occurrence: US)
  Receive Date: 20221129
  Receipt Date: 20221129
  Transmission Date: 20230113
  Serious: No
  Sender: FDA-Public Use
  Company Number: US-ABBVIE-4182780

PATIENT
  Sex: Female

DRUGS (1)
  1. HUMIRA [Suspect]
     Active Substance: ADALIMUMAB
     Indication: Rheumatoid arthritis
     Dosage: CITRATE FREE
     Route: 058

REACTIONS (11)
  - Dry mouth [Unknown]
  - Back pain [Unknown]
  - Dry eye [Unknown]
  - Headache [Unknown]
  - Dizziness [Unknown]
  - Alopecia [Unknown]
  - Visual impairment [Unknown]
  - Bone pain [Unknown]
  - Pain of skin [Unknown]
  - Neck pain [Unknown]
  - Pain in extremity [Unknown]
